FAERS Safety Report 10242047 (Version 2)
Quarter: 2014Q2

REPORT INFORMATION
  Report Type: Spontaneous
  Country: GB (occurrence: GB)
  Receive Date: 20140617
  Receipt Date: 20140617
  Transmission Date: 20141212
  Serious: Yes (Hospitalization, Other)
  Sender: FDA-Public Use
  Company Number: ALCN2006GB001894

PATIENT
  Age: 8 Month
  Sex: Male

DRUGS (3)
  1. TIMOLOL [Suspect]
     Dosage: 2GTTS PER NOSTRIL
     Route: 045
  2. PROPRANOLOL [Interacting]
     Indication: SUPRAVENTRICULAR TACHYCARDIA
  3. SODIUM CHLORIDE [Concomitant]
     Indication: NASAL CONGESTION
     Dosage: 2 GTTS
     Route: 045

REACTIONS (14)
  - Cardiotoxicity [Recovered/Resolved]
  - Heart rate decreased [Recovered/Resolved]
  - Respiratory rate decreased [Recovered/Resolved]
  - Hypotension [Recovered/Resolved]
  - Peripheral coldness [Recovered/Resolved]
  - Pulse abnormal [Recovered/Resolved]
  - Metabolic acidosis [Recovered/Resolved]
  - Nervous system disorder [Recovered/Resolved]
  - Miosis [Recovered/Resolved]
  - Depressed level of consciousness [Recovered/Resolved]
  - Lethargy [Recovered/Resolved]
  - Hypotonia [Recovered/Resolved]
  - Accidental exposure to product [Recovered/Resolved]
  - Drug interaction [Recovered/Resolved]
